FAERS Safety Report 21311979 (Version 2)
Quarter: 2022Q3

REPORT INFORMATION
  Report Type: Spontaneous
  Country: US (occurrence: US)
  Receive Date: 20220909
  Receipt Date: 20220914
  Transmission Date: 20221026
  Serious: No
  Sender: FDA-Public Use
  Company Number: US-PFIZER INC-202201135893

PATIENT
  Age: 38 Year
  Sex: Female

DRUGS (3)
  1. PAXLOVID [Suspect]
     Active Substance: NIRMATRELVIR\RITONAVIR
     Indication: COVID-19 treatment
     Dosage: UNK
     Dates: start: 20220829, end: 20220902
  2. PREDNISONE [Concomitant]
     Active Substance: PREDNISONE
     Dosage: 3 MG
     Dates: start: 202202
  3. GABAPENTIN [Concomitant]
     Active Substance: GABAPENTIN
     Dosage: 600 MG
     Dates: start: 202202

REACTIONS (1)
  - Cough [Not Recovered/Not Resolved]

NARRATIVE: CASE EVENT DATE: 20220906
